FAERS Safety Report 7816163-1 (Version None)
Quarter: 2011Q4

REPORT INFORMATION
  Report Type: 
  Country: None (occurrence: None)
  Receive Date: 20111015
  Receipt Date: 20111005
  Transmission Date: 20120403
  Serious: Yes (Other)
  Sender: FDA-Public Use
  Company Number: CA-ROCHE-GNE302709

PATIENT
  Age: 15 Year
  Sex: Male

DRUGS (2)
  1. ADVAIR DISKUS 100/50 [Concomitant]
  2. XOLAIR [Suspect]
     Indication: ASTHMA
     Route: 058
     Dates: start: 20050101, end: 20100101

REACTIONS (2)
  - CROHN'S DISEASE [None]
  - ANAL ABSCESS [None]
